FAERS Safety Report 6466874-8 (Version None)
Quarter: 2009Q4

REPORT INFORMATION
  Report Type: 
  Country: None (occurrence: None)
  Receive Date: 20091202
  Receipt Date: 20091123
  Transmission Date: 20100525
  Serious: Yes (Hospitalization, Disabling, Other)
  Sender: FDA-Public Use
  Company Number: MX-ELI_LILLY_AND_COMPANY-MX200911002223

PATIENT
  Sex: Female

DRUGS (8)
  1. FORTEO [Suspect]
     Indication: OSTEOPOROSIS
     Dosage: 20 UG, DAILY (1/D)
     Route: 058
  2. CITRACAL + D [Concomitant]
     Indication: OSTEOPOROSIS
     Dosage: 650 MG, 2/D
     Dates: start: 20090701
  3. FOSAMAX [Concomitant]
     Indication: OSTEOPOROSIS
     Dosage: UNK, MONTHLY (1/M)
  4. DIOVAN [Concomitant]
     Indication: HYPERTENSION
     Dosage: 80 MG, DAILY (1/D)
     Route: 048
  5. NOVOTIRAL [Concomitant]
     Indication: HYPOTHYROIDISM
     Dosage: UNK, DAILY (1/D)
  6. TETRAZEPAM [Concomitant]
     Indication: BACK PAIN
     Dosage: UNK, AS NEEDED
  7. INDOCIN [Concomitant]
     Indication: BACK PAIN
     Dosage: UNK, AS NEEDED
  8. TRAMACET [Concomitant]
     Indication: BACK PAIN
     Dosage: UNK, AS NEEDED

REACTIONS (4)
  - FALL [None]
  - INCORRECT DRUG DOSAGE FORM ADMINISTERED [None]
  - PAIN [None]
  - SPINAL FRACTURE [None]
